FAERS Safety Report 21087583 (Version 1)
Quarter: 2022Q3

REPORT INFORMATION
  Report Type: Spontaneous
  Country: US (occurrence: None)
  Receive Date: 20220714
  Receipt Date: 20220714
  Transmission Date: 20221026
  Serious: No
  Sender: FDA-Public Use
  Company Number: None

PATIENT
  Age: 73 Year
  Sex: Male
  Weight: 102.15 kg

DRUGS (8)
  1. REXULTI [Suspect]
     Active Substance: BREXPIPRAZOLE
     Indication: Bipolar disorder
     Dosage: FREQUENCY : DAILY;?
     Route: 048
     Dates: start: 20220511
  2. LAMOTRIGINE [Concomitant]
     Active Substance: LAMOTRIGINE
  3. BUPROPION [Concomitant]
     Active Substance: BUPROPION
  4. LISINOPRIL [Concomitant]
     Active Substance: LISINOPRIL
  5. ISOSORBIDE [Concomitant]
     Active Substance: ISOSORBIDE
  6. Elliquis [Concomitant]
  7. ROSUVASTATIN [Concomitant]
     Active Substance: ROSUVASTATIN
  8. Basic vitamins [Concomitant]

REACTIONS (3)
  - Akathisia [None]
  - Fatigue [None]
  - Asthenia [None]

NARRATIVE: CASE EVENT DATE: 20220622
